FAERS Safety Report 7419658-8 (Version None)
Quarter: 2011Q2

REPORT INFORMATION
  Report Type: 
  Country: None (occurrence: None)
  Receive Date: 20110418
  Receipt Date: 20110407
  Transmission Date: 20111010
  Serious: Yes (Hospitalization)
  Sender: FDA-Public Use
  Company Number: DE-JNJFOC-20110403505

PATIENT
  Age: 69 Year
  Sex: Male

DRUGS (1)
  1. LEVOFLOXACIN [Suspect]
     Indication: ERYSIPELAS
     Route: 048

REACTIONS (4)
  - ARTHRALGIA [None]
  - OEDEMA [None]
  - PETECHIAE [None]
  - TENDON PAIN [None]
